FAERS Safety Report 4325059-1 (Version None)
Quarter: 2004Q1

REPORT INFORMATION
  Report Type: 
  Country: None (occurrence: None)
  Receive Date: 20040324
  Receipt Date: 20040310
  Transmission Date: 20041129
  Serious: Yes (Other)
  Sender: FDA-Public Use
  Company Number: UK042854

PATIENT
  Age: 62 Year
  Sex: Female

DRUGS (4)
  1. KINERET [Suspect]
     Indication: RHEUMATOID ARTHRITIS
     Dosage: 100 MG, DAILY, SC
     Route: 058
     Dates: start: 20011226
  2. PREDNISONE [Concomitant]
  3. NIMESULIDE [Concomitant]
  4. METHOTREXATE [Concomitant]

REACTIONS (4)
  - B-CELL SMALL LYMPHOCYTIC LYMPHOMA [None]
  - LYMPHADENOPATHY [None]
  - LYMPHOCYTOSIS [None]
  - TUBERCULOSIS [None]
